FAERS Safety Report 6198368-1 (Version None)
Quarter: 2009Q2

REPORT INFORMATION
  Report Type: 
  Country: None (occurrence: None)
  Receive Date: 20090521
  Receipt Date: 20090514
  Transmission Date: 20091009
  Serious: No
  Sender: FDA-Public Use
  Company Number: US-B.I. PHARMACEUTICALS,INC./RIDGEFIELD-2009-BP-06015BP

PATIENT
  Sex: Female

DRUGS (5)
  1. FLOMAX [Suspect]
     Indication: RESIDUAL URINE
     Dosage: .4MG
     Route: 048
     Dates: start: 20090301
  2. METOPROLOL [Concomitant]
     Indication: HYPERTENSION
  3. SULFASALAZINE [Concomitant]
     Indication: RHEUMATOID ARTHRITIS
  4. PLAQUENIL [Concomitant]
     Indication: RHEUMATOID ARTHRITIS
  5. SIMVASTATIN [Concomitant]
     Indication: BLOOD CHOLESTEROL INCREASED

REACTIONS (1)
  - RHINORRHOEA [None]
